FAERS Safety Report 14240894 (Version 2)
Quarter: 2017Q4

REPORT INFORMATION
  Report Type: Report from Study
  Country: JP (occurrence: JP)
  Receive Date: 20171130
  Receipt Date: 20171201
  Transmission Date: 20180321
  Serious: Yes (Death, Other)
  Sender: FDA-Public Use
  Company Number: JP-AMGEN-JPNSP2017177855

PATIENT
  Age: 81 Year
  Sex: Female
  Weight: 63 kg

DRUGS (12)
  1. ATELEC [Concomitant]
     Active Substance: CILNIDIPINE
     Indication: HYPERTENSION
     Dosage: 15 MG (10 MG (AFTER BREAKFAST) + 5 MG (AFTER DINNER)), QD
     Dates: start: 201410, end: 20171124
  2. LOXOPROFEN [Concomitant]
     Active Substance: LOXOPROFEN
     Dosage: 1 DF, QD
  3. TRESIBA [Concomitant]
     Active Substance: INSULIN DEGLUDEC
     Indication: DIABETES MELLITUS
     Dosage: 11 UNIT, QD
     Dates: start: 201410, end: 20171124
  4. ACECOL [Concomitant]
     Active Substance: TEMOCAPRIL HYDROCHLORIDE
     Dosage: 2 MG, QD
     Route: 048
     Dates: end: 20171124
  5. SUREPOST [Concomitant]
     Active Substance: REPAGLINIDE
     Dosage: 1.5 MG, QD
     Route: 048
     Dates: end: 20171124
  6. FEBURIC [Concomitant]
     Active Substance: FEBUXOSTAT
     Indication: HYPERURICAEMIA
     Dosage: 20 MG, QD (AFTER BREAKFAST)
     Dates: start: 201510, end: 20171124
  7. EVOLOCUMAB [Suspect]
     Active Substance: EVOLOCUMAB
     Indication: HYPERCHOLESTEROLAEMIA
     Dosage: 140 MG, Q2WK
     Route: 058
     Dates: start: 20171023
  8. CYMBALTA [Concomitant]
     Active Substance: DULOXETINE HYDROCHLORIDE
     Dosage: 40 MG, QD
     Route: 048
     Dates: end: 20171124
  9. FORTEO [Concomitant]
     Active Substance: TERIPARATIDE
     Dosage: 20 MUG, QD
     Route: 058
     Dates: end: 20171124
  10. TRULICITY [Concomitant]
     Active Substance: DULAGLUTIDE
     Indication: DIABETES MELLITUS
     Dosage: 0.75 MG, QWK
     Route: 058
     Dates: start: 201609, end: 20171124
  11. EPADEL [Concomitant]
     Active Substance: ICOSAPENT
     Dosage: 1800 MG, QD
     Dates: start: 2017, end: 20171124
  12. CRESTOR [Concomitant]
     Active Substance: ROSUVASTATIN CALCIUM
     Indication: HYPERCHOLESTEROLAEMIA
     Dosage: 5 MG, QD (AFTER DINNER)
     Dates: start: 201410, end: 20171124

REACTIONS (1)
  - Myocardial infarction [Fatal]

NARRATIVE: CASE EVENT DATE: 20171125
